FAERS Safety Report 20213563 (Version 6)
Quarter: 2022Q1

REPORT INFORMATION
  Report Type: Report from Study
  Country: ES (occurrence: None)
  Receive Date: 20211221
  Receipt Date: 20220309
  Transmission Date: 20220423
  Serious: Yes (Hospitalization)
  Sender: FDA-Public Use
  Company Number: ES-Eisai Medical Research-EC-2021-105296

PATIENT
  Age: 50 Year
  Sex: Male
  Weight: 78 kg

DRUGS (6)
  1. LENVATINIB [Suspect]
     Active Substance: LENVATINIB
     Indication: Renal cell carcinoma
     Route: 048
     Dates: start: 20211118, end: 20211201
  2. PEMBROLIZUMAB [Suspect]
     Active Substance: PEMBROLIZUMAB
     Indication: Renal cell carcinoma
     Route: 041
     Dates: start: 20211118, end: 20211118
  3. MORPHINE [Concomitant]
     Active Substance: MORPHINE
     Dates: start: 20211102
  4. MAGNESIUM [Concomitant]
     Active Substance: MAGNESIUM
     Dates: start: 20211102
  5. FENTANYL [Concomitant]
     Active Substance: FENTANYL
     Dates: start: 20211102
  6. OMEPRAZOLE [Concomitant]
     Active Substance: OMEPRAZOLE
     Dates: start: 202111

REACTIONS (2)
  - Anaemia [Not Recovered/Not Resolved]
  - Platelet count decreased [Not Recovered/Not Resolved]

NARRATIVE: CASE EVENT DATE: 20211124
